FAERS Safety Report 25175741 (Version 5)
Quarter: 2025Q3

REPORT INFORMATION
  Report Type: Spontaneous
  Country: US (occurrence: US)
  Receive Date: 20250408
  Receipt Date: 20250805
  Transmission Date: 20251021
  Serious: Yes (Hospitalization, Other)
  Sender: SANOFI AVENTIS
  Company Number: US-SA-2025SA100450

PATIENT
  Sex: Female
  Weight: 104 kg

DRUGS (19)
  1. DUPIXENT [Suspect]
     Active Substance: DUPILUMAB
     Indication: Neurodermatitis
     Dosage: 300 MG, QOW
     Route: 058
     Dates: start: 20240920
  2. DABIGATRAN ETEXILATE [Concomitant]
     Active Substance: DABIGATRAN ETEXILATE
  3. LIDOCAINE [Concomitant]
     Active Substance: LIDOCAINE
  4. NYSTATIN [Concomitant]
     Active Substance: NYSTATIN
  5. METHOTREXATE [Concomitant]
     Active Substance: METHOTREXATE
  6. OXYBUTYNIN CHLORIDE [Concomitant]
     Active Substance: OXYBUTYNIN CHLORIDE
  7. METOPROLOL SUCCINATE [Concomitant]
     Active Substance: METOPROLOL SUCCINATE
  8. MONTELUKAST SODIUM [Concomitant]
     Active Substance: MONTELUKAST SODIUM
  9. GENTAMICIN SULFATE [Concomitant]
     Active Substance: GENTAMICIN SULFATE
  10. JARDIANCE [Concomitant]
     Active Substance: EMPAGLIFLOZIN
  11. COLCHICINE [Concomitant]
     Active Substance: COLCHICINE
  12. METRONIDAZOLE [Concomitant]
     Active Substance: METRONIDAZOLE
  13. COLLAGENASE SANTYL [Concomitant]
     Active Substance: COLLAGENASE CLOSTRIDIUM HISTOLYTICUM
  14. TRAMADOL [Concomitant]
     Active Substance: TRAMADOL
  15. OXCARBAZEPINE [Concomitant]
     Active Substance: OXCARBAZEPINE
  16. CLOBETASOL PROPIONATE [Concomitant]
     Active Substance: CLOBETASOL PROPIONATE
  17. CLINDAMYCIN PHOSPHATE [Concomitant]
     Active Substance: CLINDAMYCIN PHOSPHATE
  18. MUPIROCIN [Concomitant]
     Active Substance: MUPIROCIN
  19. ARNUITY ELLIPTA [Concomitant]
     Active Substance: FLUTICASONE FUROATE

REACTIONS (8)
  - Sepsis [Unknown]
  - Cellulitis [Unknown]
  - Neurodermatitis [Unknown]
  - Rebound effect [Unknown]
  - Asthenia [Unknown]
  - Irritability [Unknown]
  - Restlessness [Unknown]
  - Pruritus [Not Recovered/Not Resolved]
